FAERS Safety Report 4981029-1 (Version None)
Quarter: 2006Q2

REPORT INFORMATION
  Report Type: 
  Country: None (occurrence: None)
  Receive Date: 20060418
  Receipt Date: 20060407
  Transmission Date: 20061013
  Serious: Yes (Other)
  Sender: FDA-Public Use
  Company Number: 223903

PATIENT
  Age: 12 Year
  Sex: Female
  Weight: 39.3 kg

DRUGS (1)
  1. NUTROPIN [Suspect]
     Indication: TURNER'S SYNDROME
     Dosage: 2.3 MG, QD, SUBCUTANEOUS
     Route: 058
     Dates: start: 20020719

REACTIONS (1)
  - ANOREXIA NERVOSA [None]
